FAERS Safety Report 10419536 (Version 1)
Quarter: 2014Q3

REPORT INFORMATION
  Report Type: Spontaneous
  Country: GR (occurrence: GR)
  Receive Date: 20140829
  Receipt Date: 20140829
  Transmission Date: 20150326
  Serious: Yes (Other)
  Sender: FDA-Public Use
  Company Number: GR-PFIZER INC-2014237273

PATIENT
  Age: 68 Year
  Sex: Female

DRUGS (6)
  1. ACCURETIC [Suspect]
     Active Substance: HYDROCHLOROTHIAZIDE\QUINAPRIL HYDROCHLORIDE
     Dosage: 20 MG/12.5 MG, DAILY
  2. FILICINE [Concomitant]
     Dosage: UNK
  3. ACTONEL [Concomitant]
     Active Substance: RISEDRONATE SODIUM
     Dosage: UNK
  4. NEUROBION [Concomitant]
     Active Substance: CYANOCOBALAMIN\PYRIDOXINE\THIAMINE
  5. VASTAREL [Concomitant]
     Active Substance: TRIMETAZIDINE DIHYDROCHLORIDE
     Dosage: UNK
  6. PLAVIX [Concomitant]
     Active Substance: CLOPIDOGREL BISULFATE
     Dosage: 75 MG, UNK

REACTIONS (6)
  - Pupillary reflex impaired [Unknown]
  - Blood homocysteine increased [Unknown]
  - Visual impairment [Unknown]
  - Leukoencephalopathy [Unknown]
  - Diplopia [Unknown]
  - Platelet count increased [Unknown]

NARRATIVE: CASE EVENT DATE: 201404
